FAERS Safety Report 8026775-0 (Version None)
Quarter: 2012Q1

REPORT INFORMATION
  Report Type: 
  Country: None (occurrence: None)
  Receive Date: 20120106
  Receipt Date: 20111229
  Transmission Date: 20120608
  Serious: No
  Sender: FDA-Public Use
  Company Number: US-BIOGENIDEC-2011BI049046

PATIENT
  Age: 47 Year
  Sex: Female

DRUGS (4)
  1. TYSABRI [Concomitant]
     Indication: MULTIPLE SCLEROSIS
     Route: 042
     Dates: start: 20110307
  2. AVONEX [Suspect]
     Indication: MULTIPLE SCLEROSIS
     Route: 030
     Dates: start: 20060112, end: 20060209
  3. AVONEX [Suspect]
     Route: 030
     Dates: start: 19990531, end: 20020112
  4. TYSABRI [Concomitant]
     Route: 042
     Dates: start: 20081016, end: 20101115

REACTIONS (2)
  - NYSTAGMUS [None]
  - BLINDNESS [None]
